FAERS Safety Report 7629204-1 (Version None)
Quarter: 2011Q3

REPORT INFORMATION
  Report Type: 
  Country: None (occurrence: None)
  Receive Date: 20110722
  Receipt Date: 20110711
  Transmission Date: 20111222
  Serious: Yes (Hospitalization)
  Sender: FDA-Public Use
  Company Number: PHHO2008US04352

PATIENT
  Sex: Female
  Weight: 49.8 kg

DRUGS (5)
  1. NEORAL [Suspect]
     Dates: start: 20080403
  2. NORCO [Concomitant]
     Dates: start: 20080402, end: 20080404
  3. FENTANYL [Concomitant]
     Dates: start: 20080403, end: 20080406
  4. NEORAL [Suspect]
     Indication: HEART TRANSPLANT
     Dosage: 125 MG, BID
     Route: 048
     Dates: start: 20080318, end: 20080401
  5. MYCOPHENOLATE MOFETIL [Suspect]
     Indication: HEART TRANSPLANT
     Dosage: 1500 MG, BID
     Route: 048
     Dates: start: 20080319, end: 20080403

REACTIONS (2)
  - HEADACHE [None]
  - PHOTOPHOBIA [None]
